FAERS Safety Report 8075181-1 (Version None)
Quarter: 2012Q1

REPORT INFORMATION
  Report Type: 
  Country: None (occurrence: None)
  Receive Date: 20120127
  Receipt Date: 20120121
  Transmission Date: 20120608
  Serious: No
  Sender: FDA-Public Use
  Company Number: US-PFIZER INC-2011277008

PATIENT
  Sex: Male

DRUGS (1)
  1. SUTENT [Suspect]
     Indication: GASTROINTESTINAL STROMAL TUMOUR
     Dosage: 50 MG, 1X/DAY (1 CAPSULE DAILY, CYCLE 4 WEEKS ON + 2 OFF)
     Dates: start: 20110408

REACTIONS (3)
  - FATIGUE [None]
  - DISEASE PROGRESSION [None]
  - GASTROINTESTINAL STROMAL TUMOUR [None]
